FAERS Safety Report 7591635 (Version 2)
Quarter: 2013Q4

REPORT INFORMATION
  Report Type: Report from Study
  Country: US (occurrence: US)
  Receive Date: 20100917
  Receipt Date: 20131028
  Transmission Date: 20140711
  Serious: No
  Sender: FDA-Public Use
  Company Number: US-ASTRAZENECA-2009SE11376

PATIENT
  Sex: Female

DRUGS (1)
  1. SEROQUEL [Suspect]
     Indication: PANIC ATTACK
     Route: 048

REACTIONS (5)
  - Agitation [Unknown]
  - Drug ineffective for unapproved indication [Unknown]
  - Panic attack [Unknown]
  - Drug dose omission [Unknown]
  - Intentional drug misuse [Unknown]
